FAERS Safety Report 7929648-4 (Version None)
Quarter: 2011Q4

REPORT INFORMATION
  Report Type: 
  Country: None (occurrence: None)
  Receive Date: 20111121
  Receipt Date: 20111116
  Transmission Date: 20120403
  Serious: Yes (Other)
  Sender: FDA-Public Use
  Company Number: US-PFIZER INC-2011281320

PATIENT
  Sex: Male
  Weight: 77.098 kg

DRUGS (3)
  1. XALATAN [Suspect]
     Indication: GLAUCOMA
     Dosage: 1 GTT EACH EYE, 1X/DAY
     Route: 047
     Dates: start: 20080101
  2. NEXIUM [Concomitant]
     Dosage: UNK
  3. CELEBREX [Suspect]
     Indication: JOINT SWELLING
     Dosage: 200 MG, 1X/DAY
     Route: 048
     Dates: start: 20111109, end: 20111113

REACTIONS (4)
  - JOINT SWELLING [None]
  - GASTROOESOPHAGEAL REFLUX DISEASE [None]
  - INTRAOCULAR PRESSURE INCREASED [None]
  - DYSPEPSIA [None]
